FAERS Safety Report 25165964 (Version 1)
Quarter: 2025Q2

REPORT INFORMATION
  Report Type: Spontaneous
  Country: FR (occurrence: FR)
  Receive Date: 20250407
  Receipt Date: 20250407
  Transmission Date: 20250717
  Serious: Yes (Death, Other)
  Sender: AUROBINDO
  Company Number: FR-AFSSAPS-NY2025000356

PATIENT
  Age: 66 Year
  Sex: Female
  Weight: 47 kg

DRUGS (5)
  1. AMLODIPINE [Suspect]
     Active Substance: AMLODIPINE BESYLATE
     Indication: Product used for unknown indication
     Route: 048
     Dates: start: 20250204, end: 20250204
  2. RAMIPRIL [Suspect]
     Active Substance: RAMIPRIL
     Indication: Product used for unknown indication
     Route: 048
     Dates: start: 20250204, end: 20250204
  3. TRIMEPRAZINE [Suspect]
     Active Substance: TRIMEPRAZINE
     Indication: Poisoning deliberate
     Route: 048
     Dates: start: 20250204, end: 20250204
  4. LORAZEPAM [Suspect]
     Active Substance: LORAZEPAM
     Indication: Poisoning deliberate
     Route: 048
     Dates: start: 20250204, end: 20250204
  5. CLOMIPRAMINE HYDROCHLORIDE [Suspect]
     Active Substance: CLOMIPRAMINE HYDROCHLORIDE
     Indication: Poisoning deliberate
     Route: 048
     Dates: start: 20250204, end: 20250204

REACTIONS (2)
  - Circulatory collapse [Fatal]
  - Poisoning deliberate [Fatal]

NARRATIVE: CASE EVENT DATE: 20250204
